FAERS Safety Report 9297768 (Version 2)
Quarter: 2013Q2

REPORT INFORMATION
  Report Type: Spontaneous
  Country: IT (occurrence: IT)
  Receive Date: 20130520
  Receipt Date: 20130520
  Transmission Date: 20140414
  Serious: Yes (Hospitalization, Other)
  Sender: FDA-Public Use
  Company Number: PHHY2013IT035356

PATIENT
  Age: 33 Year
  Sex: Female

DRUGS (3)
  1. SANDIMMUN NEORAL / OL [Suspect]
     Indication: RENAL TRANSPLANT
     Dosage: 100 MG DAILY
     Dates: start: 20020503, end: 20130424
  2. REGOLINT [Interacting]
     Indication: CONSTIPATION
     Dosage: 9.74 G (ONE OR TWO POSOLOGIC UNIT) DAILY FOR 8 DAYS
     Dates: start: 20130408, end: 20130418
  3. STEROIDS NOS [Concomitant]

REACTIONS (4)
  - Kidney transplant rejection [Recovered/Resolved with Sequelae]
  - Abdominal pain [Recovered/Resolved with Sequelae]
  - Blood creatinine increased [Recovered/Resolved with Sequelae]
  - Drug interaction [Unknown]
